FAERS Safety Report 14317829 (Version 1)
Quarter: 2017Q4

REPORT INFORMATION
  Report Type: Spontaneous
  Country: US (occurrence: US)
  Receive Date: 20171222
  Receipt Date: 20171222
  Transmission Date: 20180321
  Serious: Yes (Death, Hospitalization, Other)
  Sender: FDA-Public Use
  Company Number: US-PURDUE PHARMA-USA-2017-0142122

PATIENT
  Age: 26 Year
  Sex: Male

DRUGS (1)
  1. OXYCONTIN [Suspect]
     Active Substance: OXYCODONE HYDROCHLORIDE
     Indication: DRUG ABUSE
     Dosage: UNK
     Dates: start: 20171213

REACTIONS (4)
  - Loss of consciousness [Unknown]
  - Pulse absent [Unknown]
  - Death [Fatal]
  - Drug abuse [Unknown]

NARRATIVE: CASE EVENT DATE: 20171213
